FAERS Safety Report 24042119 (Version 1)
Quarter: 2024Q3

REPORT INFORMATION
  Report Type: Other
  Country: US (occurrence: US)
  Receive Date: 20240702
  Receipt Date: 20240702
  Transmission Date: 20241017
  Serious: Yes (Other)
  Sender: TRAVERE THERAPEUTICS
  Company Number: US-TRAVERE-2024TVT00644

PATIENT
  Age: 54 Year
  Sex: Male

DRUGS (2)
  1. FILSPARI [Suspect]
     Active Substance: SPARSENTAN
     Indication: IgA nephropathy
     Route: 048
     Dates: start: 20240618, end: 20240621
  2. FILSPARI [Suspect]
     Active Substance: SPARSENTAN
     Route: 048
     Dates: start: 20240623

REACTIONS (2)
  - Haematochezia [Unknown]
  - Blood pressure decreased [Unknown]

NARRATIVE: CASE EVENT DATE: 20240621
